FAERS Safety Report 6356203-2 (Version None)
Quarter: 2009Q3

REPORT INFORMATION
  Report Type: 
  Country: None (occurrence: None)
  Receive Date: 20090911
  Receipt Date: 20090911
  Transmission Date: 20100115
  Serious: Yes (Other)
  Sender: FDA-Public Use
  Company Number: None

PATIENT
  Age: 45 Year
  Sex: Female
  Weight: 66.2252 kg

DRUGS (3)
  1. SAVELLA [Suspect]
     Indication: ARTHRALGIA
     Dosage: 12.5 MG BID/TITRATE UP PO; 50 MG BID PO
     Route: 048
     Dates: start: 20090908
  2. SAVELLA [Suspect]
     Indication: FATIGUE
     Dosage: 12.5 MG BID/TITRATE UP PO; 50 MG BID PO
     Route: 048
     Dates: start: 20090908
  3. SAVELLA [Suspect]
     Indication: MYALGIA
     Dosage: 12.5 MG BID/TITRATE UP PO; 50 MG BID PO
     Route: 048
     Dates: start: 20090908

REACTIONS (3)
  - INSOMNIA [None]
  - IRRITABILITY [None]
  - PALPITATIONS [None]
